FAERS Safety Report 21754704 (Version 8)
Quarter: 2025Q1

REPORT INFORMATION
  Report Type: Spontaneous
  Country: US (occurrence: US)
  Receive Date: 20221220
  Receipt Date: 20250225
  Transmission Date: 20250408
  Serious: No
  Sender: PFIZER
  Company Number: US-PFIZER INC-202101515987

PATIENT
  Age: 71 Year
  Sex: Female
  Weight: 91.202 kg

DRUGS (1)
  1. BOSULIF [Suspect]
     Active Substance: BOSUTINIB MONOHYDRATE
     Indication: Chronic myeloid leukaemia
     Dosage: 500 MG, 1X/DAY (TAKE 1 TABLET (500 MG TOTAL) PER DAY)
     Route: 048

REACTIONS (5)
  - Oropharyngeal pain [Unknown]
  - Malaise [Unknown]
  - Illness [Unknown]
  - Fatigue [Unknown]
  - Influenza [Unknown]
